FAERS Safety Report 9291292 (Version 2)
Quarter: 2013Q4

REPORT INFORMATION
  Report Type: Spontaneous
  Country: US (occurrence: US)
  Receive Date: 20130515
  Receipt Date: 20131023
  Transmission Date: 20140711
  Serious: Yes (Hospitalization)
  Sender: FDA-Public Use
  Company Number: US-B.I. PHARMACEUTICALS,INC./RIDGEFIELD-2013-BI-13312BP

PATIENT
  Age: 60 Year
  Sex: Male
  Weight: 108.86 kg

DRUGS (7)
  1. PRADAXA [Suspect]
     Indication: ANTICOAGULANT THERAPY
     Route: 048
     Dates: start: 20110202, end: 20111202
  2. PRADAXA [Suspect]
     Indication: ATRIAL FIBRILLATION
  3. COENZYME Q [Concomitant]
  4. NEXIUM [Concomitant]
     Dosage: 40 MG
  5. TOPROL [Concomitant]
  6. OEMGA-3 FATTY ACIDS [Concomitant]
  7. CRESTOR [Concomitant]
     Dosage: 5 MG

REACTIONS (2)
  - Gastrointestinal haemorrhage [Recovered/Resolved]
  - Haemorrhagic anaemia [Unknown]
